FAERS Safety Report 6939629-5 (Version None)
Quarter: 2010Q3

REPORT INFORMATION
  Report Type: 
  Country: None (occurrence: None)
  Receive Date: 20100820
  Receipt Date: 20100811
  Transmission Date: 20110219
  Serious: Yes (Disabling, Other)
  Sender: FDA-Public Use
  Company Number: 670143

PATIENT
  Age: 52 Year
  Sex: Female

DRUGS (8)
  1. PACLITAXEL [Suspect]
     Indication: MALIGNANT PERITONEAL NEOPLASM
     Dosage: 305 MG MILLIGRARM(S) , INTRAVENOUS
     Route: 042
  2. PACLITAXEL [Suspect]
     Indication: OVARIAN CANCER
     Dosage: 305 MG MILLIGRARM(S) , INTRAVENOUS
     Route: 042
  3. FENTANYL CITRATE [Concomitant]
  4. ROCURONIUM BROMIDE [Concomitant]
  5. THIOPENTAL SODIUM [Concomitant]
  6. PROPOFOL [Concomitant]
  7. ALFENTANIL [Concomitant]
  8. CARBOPLATIN [Concomitant]

REACTIONS (15)
  - ARTHRALGIA [None]
  - DRUG HYPERSENSITIVITY [None]
  - DRUG TOXICITY [None]
  - DYSPNOEA [None]
  - FACE OEDEMA [None]
  - LOCALISED OEDEMA [None]
  - MICROSTOMIA [None]
  - MOTOR DYSFUNCTION [None]
  - NEURALGIA [None]
  - OEDEMA PERIPHERAL [None]
  - PARAESTHESIA [None]
  - PULMONARY VASCULAR DISORDER [None]
  - RAYNAUD'S PHENOMENON [None]
  - SCLERODERMA [None]
  - SKIN FIBROSIS [None]
